FAERS Safety Report 8845209 (Version 1)
Quarter: 2012Q4

REPORT INFORMATION
  Report Type: Spontaneous
  Country: US (occurrence: None)
  Receive Date: 20121016
  Receipt Date: 20121016
  Transmission Date: 20130627
  Serious: Yes (Hospitalization)
  Sender: FDA-Public Use
  Company Number: None

PATIENT
  Age: 62 Year
  Sex: Male
  Weight: 63.05 kg

DRUGS (3)
  1. LENALIDOMIDE [Suspect]
     Indication: MULTIPLE MYELOMA
     Dosage: 25 mg on days 1-21, PO
     Route: 048
     Dates: start: 20121001, end: 20121013
  2. PANOBINOSTAT [Suspect]
     Dosage: 20mg Days1, 3, 5, 15, 17, 19
     Route: 048
     Dates: start: 20121001, end: 20121005
  3. DEXAMETHASONE [Concomitant]

REACTIONS (2)
  - Pulmonary embolism [None]
  - Pneumonia [None]
